FAERS Safety Report 7631852-X (Version None)
Quarter: 2011Q3

REPORT INFORMATION
  Report Type: 
  Country: None (occurrence: None)
  Receive Date: 20110725
  Receipt Date: 20110415
  Transmission Date: 20111222
  Serious: No
  Sender: FDA-Public Use
  Company Number: US-BRISTOL-MYERS SQUIBB COMPANY-15678253

PATIENT
  Age: 63 Year
  Sex: Male
  Weight: 73 kg

DRUGS (1)
  1. WARFARIN SODIUM [Suspect]
     Indication: THROMBOSIS
     Dosage: 5MG DOSE 4 TIMES A WEEK AND A 3MG DOSE 3 TIMES A WEEK

REACTIONS (1)
  - INTERNATIONAL NORMALISED RATIO ABNORMAL [None]
